FAERS Safety Report 15762529 (Version 4)
Quarter: 2019Q1

REPORT INFORMATION
  Report Type: Report from Study
  Country: CO (occurrence: CO)
  Receive Date: 20181226
  Receipt Date: 20190316
  Transmission Date: 20190417
  Serious: Yes (Life-Threatening, Hospitalization)
  Sender: FDA-Public Use
  Company Number: PHHY2017CO138929

PATIENT
  Age: 32 Year
  Sex: Male
  Weight: 78 kg

DRUGS (4)
  1. REVOLADE [Suspect]
     Active Substance: ELTROMBOPAG
     Indication: IMMUNE THROMBOCYTOPENIC PURPURA
     Dosage: 25 MG, QID
     Route: 048
     Dates: start: 20170817
  2. REVOLADE [Suspect]
     Active Substance: ELTROMBOPAG
     Dosage: 150 MG, QD
     Route: 048
     Dates: start: 201802, end: 201808
  3. CICLOSPORIN [Suspect]
     Active Substance: CYCLOSPORINE
     Indication: THROMBOCYTOPENIC PURPURA
     Dosage: 2 DF, UNK (APPROXIMATELY, 3 YEARS AGO)
     Route: 048
  4. ACETAMINOPHEN. [Concomitant]
     Active Substance: ACETAMINOPHEN
     Indication: PRODUCT USED FOR UNKNOWN INDICATION
     Dosage: UNK
     Route: 065

REACTIONS (20)
  - Platelet count decreased [Unknown]
  - Haemoglobin decreased [Unknown]
  - Gastrointestinal haemorrhage [Unknown]
  - Haematochezia [Unknown]
  - Pallor [Unknown]
  - Malaise [Unknown]
  - Inappropriate schedule of product administration [Unknown]
  - Somnolence [Unknown]
  - Contusion [Unknown]
  - Fatigue [Unknown]
  - Oedema peripheral [Unknown]
  - Petechiae [Unknown]
  - Tooth abscess [Unknown]
  - Food refusal [Unknown]
  - General physical health deterioration [Unknown]
  - Headache [Unknown]
  - Haemoglobin decreased [Recovered/Resolved]
  - Incorrect dose administered [Unknown]
  - Immune thrombocytopenic purpura [Unknown]
  - Asthenia [Unknown]

NARRATIVE: CASE EVENT DATE: 20171020
